FAERS Safety Report 8620576-8 (Version None)
Quarter: 2012Q3

REPORT INFORMATION
  Report Type: 
  Country: None (occurrence: None)
  Receive Date: 20120824
  Receipt Date: 20120817
  Transmission Date: 20120928
  Serious: Yes (Hospitalization, Other)
  Sender: FDA-Public Use
  Company Number: DE-ACTELION-A-US2011-44002

PATIENT
  Age: 32 Year
  Sex: Female

DRUGS (2)
  1. VENTAVIS [Suspect]
     Indication: PULMONARY HYPERTENSION
     Dosage: 5 UG, UNK
     Route: 055
     Dates: start: 20100310
  2. ILOMEDIN [Suspect]
     Dosage: UNK
     Route: 042
     Dates: start: 20101201

REACTIONS (5)
  - PULMONARY ARTERIAL HYPERTENSION [None]
  - GENERAL PHYSICAL HEALTH DETERIORATION [None]
  - HOSPITALISATION [None]
  - CONDITION AGGRAVATED [None]
  - PERICARDIAL EFFUSION [None]
